FAERS Safety Report 19811890 (Version 5)
Quarter: 2022Q1

REPORT INFORMATION
  Report Type: Spontaneous
  Country: JP (occurrence: JP)
  Receive Date: 20210910
  Receipt Date: 20220217
  Transmission Date: 20220423
  Serious: Yes (Hospitalization, Other)
  Sender: FDA-Public Use
  Company Number: JP-BRISTOL-MYERS SQUIBB COMPANY-BMS-2021-090105

PATIENT
  Age: 44 Year
  Sex: Male

DRUGS (3)
  1. YERVOY [Suspect]
     Active Substance: IPILIMUMAB
     Indication: Metastatic renal cell carcinoma
     Dosage: 67.7 MILLIGRAM
     Route: 041
     Dates: start: 20190711, end: 20190822
  2. OPDIVO [Suspect]
     Active Substance: NIVOLUMAB
     Indication: Metastatic renal cell carcinoma
     Dosage: 240 MILLIGRAM
     Route: 041
     Dates: start: 20190711, end: 20190822
  3. OPDIVO [Suspect]
     Active Substance: NIVOLUMAB
     Dosage: UNK MILLIGRAM
     Route: 041

REACTIONS (8)
  - Adrenocortical insufficiency acute [Recovered/Resolved]
  - Acute kidney injury [Recovered/Resolved]
  - Hypercalcaemia [Recovered/Resolved]
  - Hypothyroidism [Recovered/Resolved]
  - Hypothalamo-pituitary disorder [Unknown]
  - Malaise [Unknown]
  - Headache [Recovered/Resolved]
  - Hypophysitis [Recovered/Resolved]

NARRATIVE: CASE EVENT DATE: 20190802
